FAERS Safety Report 14242525 (Version 1)
Quarter: 2017Q4

REPORT INFORMATION
  Report Type: Spontaneous
  Country: US (occurrence: None)
  Receive Date: 20171130
  Receipt Date: 20171130
  Transmission Date: 20180321
  Serious: Yes (Other)
  Sender: FDA-Public Use
  Company Number: None

PATIENT
  Age: 79 Year
  Sex: Male

DRUGS (17)
  1. METFORMIN [Concomitant]
     Active Substance: METFORMIN HYDROCHLORIDE
  2. BD PEN NEEDLE MIS [Concomitant]
  3. REQUIP [Concomitant]
     Active Substance: ROPINIROLE HYDROCHLORIDE
  4. WARFARIN [Concomitant]
     Active Substance: WARFARIN
  5. EZETIMIBE. [Concomitant]
     Active Substance: EZETIMIBE
  6. ROPINIROLE. [Concomitant]
     Active Substance: ROPINIROLE
  7. CLARITIN [Concomitant]
     Active Substance: LORATADINE
  8. MYRBETRIQ [Concomitant]
     Active Substance: MIRABEGRON
  9. ZYTIGA [Suspect]
     Active Substance: ABIRATERONE ACETATE
     Indication: PROSTATE CANCER
     Dosage: 250MG 4 TABLETS DAILY ORAL
     Route: 048
     Dates: start: 20131206
  10. METOPROLOL TARTRATE. [Concomitant]
     Active Substance: METOPROLOL TARTRATE
  11. LANTUS [Concomitant]
     Active Substance: INSULIN GLARGINE
  12. GABAPENTIN. [Concomitant]
     Active Substance: GABAPENTIN
  13. DOXAZOSIN [Concomitant]
     Active Substance: DOXAZOSIN\DOXAZOSIN MESYLATE
  14. DULOXETINE. [Concomitant]
     Active Substance: DULOXETINE
  15. CYABOCOBALAM [Concomitant]
  16. LOSARTAN. [Concomitant]
     Active Substance: LOSARTAN
  17. PREDNISONE. [Concomitant]
     Active Substance: PREDNISONE

REACTIONS (3)
  - Drug dose omission [None]
  - Depression [None]
  - Bladder cancer [None]
